FAERS Safety Report 9973020 (Version 1)
Quarter: 2014Q1

REPORT INFORMATION
  Report Type: Spontaneous
  Country: US (occurrence: None)
  Receive Date: 20140131
  Receipt Date: 20140131
  Transmission Date: 20141002
  Serious: Yes (Hospitalization)
  Sender: FDA-Public Use
  Company Number: 102007

PATIENT
  Sex: Female

DRUGS (2)
  1. KEPPRA [Suspect]
     Indication: CONVULSION
     Dosage: (3000 MG, 1000 MG EVERY MORNING AND 2000 MG EVERY NIGHT)
     Dates: start: 201302
  2. DEPAKOTE [Concomitant]

REACTIONS (1)
  - Convulsion [None]
